FAERS Safety Report 6304114-0 (Version None)
Quarter: 2009Q3

REPORT INFORMATION
  Report Type: 
  Country: None (occurrence: None)
  Receive Date: 20090806
  Receipt Date: 20090729
  Transmission Date: 20100115
  Serious: Yes (Hospitalization)
  Sender: FDA-Public Use
  Company Number: 2008AL008127

PATIENT
  Age: 75 Year
  Sex: Female

DRUGS (37)
  1. DIGOXIN [Suspect]
     Dosage: 0.125MG, DIALY, PO
     Route: 048
     Dates: start: 20070724, end: 20080501
  2. TRIAMTERENE [Concomitant]
  3. LIPITOR [Concomitant]
  4. VALIUM [Concomitant]
  5. HYDROCODONE [Concomitant]
  6. LISINOPRIL [Concomitant]
  7. PRILOSEC [Concomitant]
  8. AMIODARONE HCL [Concomitant]
  9. COUMADIN [Concomitant]
  10. BACTRIM [Concomitant]
  11. PREMARIN [Concomitant]
  12. TRICOR [Concomitant]
  13. ATENOLOL [Concomitant]
  14. ISOSORBIDE MN [Concomitant]
  15. HDYRDOCODONE-APAP [Concomitant]
  16. RANITIDINE [Concomitant]
  17. ATUSS DM [Concomitant]
  18. RHINOCORT [Concomitant]
  19. CHLORDIAZEPOXIDE [Concomitant]
  20. D-METHORPHAN HB/PE/CPM [Concomitant]
  21. CEPHALEXIN [Concomitant]
  22. PROTONIX [Concomitant]
  23. TRIMOX [Concomitant]
  24. OMEPRAZOLE [Concomitant]
  25. DIAZEPAM [Concomitant]
  26. GEMFIBROZIL [Concomitant]
  27. CLOTRIMAZOLE-BETAMETHASONE [Concomitant]
  28. PROCTOZONE-HC [Concomitant]
  29. OMACOR [Concomitant]
  30. HDYROCORTISONE AC [Concomitant]
  31. HYDROXYZINE PAM [Concomitant]
  32. ACETAZOLAMIDE [Concomitant]
  33. VIGAMOX [Concomitant]
  34. BUSIPRONE HCL [Concomitant]
  35. AMITRIPTYLINE HCL [Concomitant]
  36. MENTAX [Concomitant]
  37. TRIAMTERENE AND HYDROCHLOROTHIAZIDE [Concomitant]

REACTIONS (15)
  - ANXIETY [None]
  - ASTHENIA [None]
  - ATRIAL FIBRILLATION [None]
  - BRADYCARDIA [None]
  - CHEST PAIN [None]
  - COUGH [None]
  - DEPRESSION [None]
  - DIZZINESS [None]
  - DYSPNOEA [None]
  - FATIGUE [None]
  - HYPERKALAEMIA [None]
  - HYPOTENSION [None]
  - MULTIPLE INJURIES [None]
  - RENAL FAILURE [None]
  - THERAPEUTIC AGENT TOXICITY [None]
